FAERS Safety Report 6520683-X (Version None)
Quarter: 2009Q4

REPORT INFORMATION
  Report Type: 
  Country: None (occurrence: None)
  Receive Date: 20091229
  Receipt Date: 20091222
  Transmission Date: 20100525
  Serious: Yes (Other)
  Sender: FDA-Public Use
  Company Number: US-MERCK-0910USA02101

PATIENT
  Age: 67 Year
  Sex: Female
  Weight: 60 kg

DRUGS (6)
  1. FOSAMAX PLUS D [Suspect]
     Indication: OSTEOPENIA
     Route: 048
     Dates: start: 20030101, end: 20071001
  2. CAFERGOT [Concomitant]
     Indication: MIGRAINE
     Route: 065
     Dates: start: 19600101
  3. HYDROCODONE [Concomitant]
     Indication: MIGRAINE
     Route: 065
     Dates: start: 19940101
  4. FOSAMAX [Suspect]
     Indication: OSTEOPOROSIS
     Route: 048
     Dates: start: 20030717
  5. FOSAMAX [Suspect]
     Indication: OSTEOPENIA
     Route: 048
     Dates: start: 20030717
  6. ESTROGENS (UNSPECIFIED) [Concomitant]
     Indication: OESTROGEN DEFICIENCY
     Route: 065
     Dates: end: 20040101

REACTIONS (6)
  - ANAEMIA [None]
  - ARTHROPATHY [None]
  - BONE DENSITY DECREASED [None]
  - OSTEONECROSIS [None]
  - SENSITIVITY OF TEETH [None]
  - TOOTHACHE [None]
